FAERS Safety Report 5355883-8 (Version None)
Quarter: 2007Q2

REPORT INFORMATION
  Report Type: 
  Country: None (occurrence: None)
  Receive Date: 20070613
  Receipt Date: 20070604
  Transmission Date: 20071010
  Serious: No
  Sender: FDA-Public Use
  Company Number: CA-JNJFOC-20070600901

PATIENT

DRUGS (3)
  1. REMICADE [Suspect]
     Indication: DRUG USE FOR UNKNOWN INDICATION
     Route: 042
  2. SOLU-CORTEF [Concomitant]
  3. BENADRYL [Concomitant]

REACTIONS (4)
  - CHEST PAIN [None]
  - CONJUNCTIVAL HYPERAEMIA [None]
  - DYSPNOEA [None]
  - PYREXIA [None]
